FAERS Safety Report 8541659-7 (Version None)
Quarter: 2012Q3

REPORT INFORMATION
  Report Type: 
  Country: None (occurrence: None)
  Receive Date: 20120726
  Receipt Date: 20110805
  Transmission Date: 20120928
  Serious: Yes (Hospitalization)
  Sender: FDA-Public Use
  Company Number: JP-GLAXOSMITHKLINE-B0738235A

PATIENT
  Sex: Female
  Weight: 47 kg

DRUGS (12)
  1. PAXIL [Concomitant]
     Route: 048
  2. METOPROLOL TARTRATE [Concomitant]
     Route: 048
  3. ALENDRONATE SODIUM [Concomitant]
     Route: 048
  4. ROCALTROL [Concomitant]
     Route: 065
  5. ETIZOLAM [Concomitant]
     Route: 048
  6. LANSOPRAZOLE [Concomitant]
     Route: 065
  7. ALLOPURINOL [Concomitant]
     Route: 048
  8. ADALAT CC [Concomitant]
     Route: 048
  9. LIPITOR [Concomitant]
     Route: 048
  10. MOBIC [Concomitant]
     Route: 048
  11. VALTREX [Suspect]
     Indication: HERPES ZOSTER
     Dosage: 3000MG PER DAY
     Route: 048
     Dates: start: 20110729
  12. DOGMATYL [Concomitant]
     Route: 065

REACTIONS (12)
  - ANURIA [None]
  - RENAL FAILURE ACUTE [None]
  - DIZZINESS [None]
  - BLOOD UREA INCREASED [None]
  - COORDINATION ABNORMAL [None]
  - RENAL DISORDER [None]
  - MYOGLOBIN BLOOD INCREASED [None]
  - MYOGLOBIN URINE PRESENT [None]
  - BLOOD URIC ACID INCREASED [None]
  - BLOOD LACTATE DEHYDROGENASE INCREASED [None]
  - BLOOD CREATININE INCREASED [None]
  - RENAL IMPAIRMENT [None]
